FAERS Safety Report 5565809-X (Version None)
Quarter: 2007Q4

REPORT INFORMATION
  Report Type: 
  Country: None (occurrence: None)
  Receive Date: 20071213
  Receipt Date: 20071128
  Transmission Date: 20080405
  Serious: Yes (Disabling)
  Sender: FDA-Public Use
  Company Number: DSU-2007-00598

PATIENT
  Age: 67 Year
  Sex: Male
  Weight: 76.6579 kg

DRUGS (4)
  1. BENICAR [Suspect]
     Indication: HYPERTENSION
     Dosage: PER ORAL
     Route: 048
     Dates: start: 20050701
  2. AVALIDE HYDROCHLOROTHIAZIDE, IRBESARTAN)(HYDROCHLOROTHIAZIDE, IRBESART [Concomitant]
  3. ZYRTEC (CETIRIZINE HYDROCHLORIDE)(TABLET)(CETIRIZINE HYDROCHLORIDE) [Concomitant]
  4. VYTORIN (TABLET) [Concomitant]

REACTIONS (5)
  - ASTHENIA [None]
  - LOSS OF CONSCIOUSNESS [None]
  - MULTIPLE INJURIES [None]
  - ROAD TRAFFIC ACCIDENT [None]
  - SYNCOPE [None]
